FAERS Safety Report 17663169 (Version 2)
Quarter: 2020Q2

REPORT INFORMATION
  Report Type: Report from Study
  Country: ES (occurrence: ES)
  Receive Date: 20200413
  Receipt Date: 20200513
  Transmission Date: 20200713
  Serious: Yes (Other)
  Sender: FDA-Public Use
  Company Number: ES-EXELIXIS-XL18420028061

PATIENT
  Age: 63 Year
  Sex: Male

DRUGS (2)
  1. CABOZANTINIB [Suspect]
     Active Substance: CABOZANTINIB
     Dosage: 40 MG, QD
     Route: 048
     Dates: start: 20200304
  2. CABOZANTINIB [Suspect]
     Active Substance: CABOZANTINIB
     Indication: RENAL CELL CARCINOMA
     Dosage: 60 MG, QD
     Route: 048
     Dates: start: 20191220, end: 20200226

REACTIONS (7)
  - Decreased appetite [Recovering/Resolving]
  - Asthenia [Recovering/Resolving]
  - COVID-19 [Recovering/Resolving]
  - Diarrhoea [Not Recovered/Not Resolved]
  - Epilepsy [Recovered/Resolved]
  - Anal fissure [Recovering/Resolving]
  - Weight decreased [Recovering/Resolving]

NARRATIVE: CASE EVENT DATE: 201912
